FAERS Safety Report 6960103-4 (Version None)
Quarter: 2010Q3

REPORT INFORMATION
  Report Type: 
  Country: None (occurrence: None)
  Receive Date: 20100901
  Receipt Date: 20100819
  Transmission Date: 20110219
  Serious: Yes (Other)
  Sender: FDA-Public Use
  Company Number: US-ELI_LILLY_AND_COMPANY-US201008006846

PATIENT
  Sex: Male
  Weight: 96.689 kg

DRUGS (6)
  1. OLANZAPINE [Suspect]
     Indication: SCHIZOAFFECTIVE DISORDER
     Dosage: 300 MG, MONTHLY (1/M)
     Route: 030
     Dates: start: 20100622
  2. ZANTAC [Concomitant]
     Dosage: 150 MG, 2/D
  3. LORATADINE [Concomitant]
     Dosage: 10 MG, 2/D
  4. WELLBUTRIN SR [Concomitant]
     Dosage: 150 MG, DAILY (1/D)
  5. DEPAKOTE ER [Concomitant]
     Dosage: 1000 MG, 2/D
  6. ABILIFY [Concomitant]
     Dosage: 10 MG, EACH EVENING

REACTIONS (3)
  - DIZZINESS [None]
  - HOT FLUSH [None]
  - VISION BLURRED [None]
